FAERS Safety Report 5396210-X (Version None)
Quarter: 2007Q3

REPORT INFORMATION
  Report Type: 
  Country: None (occurrence: None)
  Receive Date: 20070725
  Receipt Date: 20070717
  Transmission Date: 20080115
  Serious: Yes (Hospitalization, Other)
  Sender: FDA-Public Use
  Company Number: PHEH2007US09843

PATIENT
  Age: 57 Year
  Sex: Male

DRUGS (8)
  1. RITALIN-SR [Suspect]
     Route: 048
  2. ANTIBIOTICS [Suspect]
  3. VICODIN [Suspect]
  4. KEFLEX [Suspect]
  5. ZOSYN [Suspect]
  6. DAPTOMYCIN [Suspect]
  7. CIPRO [Suspect]
  8. PROVIGIL [Suspect]

REACTIONS (5)
  - AGITATION [None]
  - CONFUSIONAL STATE [None]
  - DRUG INTERACTION [None]
  - FALL [None]
  - MEMORY IMPAIRMENT [None]
